FAERS Safety Report 18379883 (Version 1)
Quarter: 2020Q4

REPORT INFORMATION
  Report Type: Spontaneous
  Country: CN (occurrence: CN)
  Receive Date: 20201013
  Receipt Date: 20201013
  Transmission Date: 20210114
  Serious: Yes (Other)
  Sender: FDA-Public Use
  Company Number: CN-ELI_LILLY_AND_COMPANY-CN202010004558

PATIENT
  Sex: Female

DRUGS (1)
  1. TALTZ [Suspect]
     Active Substance: IXEKIZUMAB
     Indication: PSORIASIS
     Dosage: 80 MG, VIA LOADING DOSE
     Route: 058
     Dates: start: 20201001

REACTIONS (7)
  - Heart rate increased [Recovering/Resolving]
  - Blood pressure abnormal [Recovering/Resolving]
  - Dizziness [Unknown]
  - Nausea [Unknown]
  - Oxygen saturation abnormal [Recovering/Resolving]
  - Chills [Recovering/Resolving]
  - Hypoaesthesia [Recovering/Resolving]

NARRATIVE: CASE EVENT DATE: 20201001
